FAERS Safety Report 9502776 (Version 2)
Quarter: 2013Q4

REPORT INFORMATION
  Report Type: Spontaneous
  Country: FR (occurrence: FR)
  Receive Date: 20130906
  Receipt Date: 20131002
  Transmission Date: 20140711
  Serious: Yes (Life-Threatening, Hospitalization, Other)
  Sender: FDA-Public Use
  Company Number: FR-BAYER-2013-104810

PATIENT
  Age: 66 Year
  Sex: Male
  Weight: 106 kg

DRUGS (3)
  1. NEXAVAR [Suspect]
     Indication: HEPATOCELLULAR CARCINOMA
     Dosage: 200 MG, BID
     Dates: start: 20130530, end: 20130801
  2. LASILIX [Concomitant]
  3. PREVISCAN [Concomitant]
     Indication: ARRHYTHMIA
     Dosage: UNK

REACTIONS (3)
  - Vascular graft complication [Recovered/Resolved]
  - Haemothorax [Recovered/Resolved]
  - Shock [None]
